FAERS Safety Report 9086296 (Version 2)
Quarter: 2013Q1

REPORT INFORMATION
  Report Type: Spontaneous
  Country: US (occurrence: US)
  Receive Date: 20130201
  Receipt Date: 20130313
  Transmission Date: 20140127
  Serious: No
  Sender: FDA-Public Use
  Company Number: US-009507513-1301USA013525

PATIENT
  Sex: 0

DRUGS (1)
  1. SAPHRIS [Suspect]
     Route: 048

REACTIONS (4)
  - Suicidal ideation [Unknown]
  - Tardive dyskinesia [Unknown]
  - Depression [Unknown]
  - Adverse event [Unknown]
